FAERS Safety Report 14015609 (Version 1)
Quarter: 2017Q3

REPORT INFORMATION
  Report Type: Spontaneous
  Country: US (occurrence: None)
  Receive Date: 20170927
  Receipt Date: 20170927
  Transmission Date: 20171128
  Serious: Yes (Hospitalization)
  Sender: FDA-Public Use
  Company Number: None

PATIENT
  Age: 67 Year
  Sex: Male
  Weight: 108.7 kg

DRUGS (2)
  1. IBUPROFEN. [Suspect]
     Active Substance: IBUPROFEN
     Indication: GASTRIC ULCER
     Route: 048
     Dates: start: 20170912, end: 20170913
  2. IBUPROFEN. [Suspect]
     Active Substance: IBUPROFEN
     Indication: DUODENAL ULCER
     Route: 048
     Dates: start: 20170912, end: 20170913

REACTIONS (5)
  - Anaemia [None]
  - Upper gastrointestinal haemorrhage [None]
  - Gastric haemorrhage [None]
  - Hepatic encephalopathy [None]
  - Orthostatic intolerance [None]

NARRATIVE: CASE EVENT DATE: 20170913
